FAERS Safety Report 26183038 (Version 1)
Quarter: 2025Q4

REPORT INFORMATION
  Report Type: Spontaneous
  Country: US (occurrence: US)
  Receive Date: 20251221
  Receipt Date: 20251221
  Transmission Date: 20260117
  Serious: No
  Sender: ACCORD
  Company Number: US-Accord-510840

PATIENT
  Age: 71 Year
  Sex: Male

DRUGS (2)
  1. UDENYCA [Suspect]
     Active Substance: PEGFILGRASTIM-CBQV
     Indication: Bladder cancer
     Dosage: STRENGTH: 6MG/0.6ML
     Dates: start: 202510
  2. UDENYCA [Suspect]
     Active Substance: PEGFILGRASTIM-CBQV
     Indication: Bladder cancer
     Dosage: STRENGTH: 6MG/0.6ML
     Dates: start: 202510

REACTIONS (4)
  - Exposure via skin contact [Unknown]
  - Exposure via skin contact [Unknown]
  - Device malfunction [Unknown]
  - Device malfunction [Unknown]

NARRATIVE: CASE EVENT DATE: 20251015
